FAERS Safety Report 24031342 (Version 1)
Quarter: 2024Q2

REPORT INFORMATION
  Report Type: Spontaneous
  Country: US (occurrence: US)
  Receive Date: 20240629
  Receipt Date: 20240629
  Transmission Date: 20240716
  Serious: Yes (Hospitalization, Other)
  Sender: FDA-Public Use
  Company Number: US-MLMSERVICE-20240613-PI100407-00331-1

PATIENT
  Age: 43 Year
  Sex: Female

DRUGS (1)
  1. VERAPAMIL HYDROCHLORIDE [Suspect]
     Active Substance: VERAPAMIL HYDROCHLORIDE
     Indication: Product used for unknown indication
     Dosage: UNK
     Route: 065

REACTIONS (6)
  - Distributive shock [Recovering/Resolving]
  - Hypoxia [Recovering/Resolving]
  - Left ventricular dysfunction [Recovering/Resolving]
  - Overdose [Recovering/Resolving]
  - Pulse absent [Recovered/Resolved]
  - Pulmonary arterial wedge pressure increased [Recovering/Resolving]
